FAERS Safety Report 4545120-6 (Version None)
Quarter: 2005Q1

REPORT INFORMATION
  Report Type: 
  Country: None (occurrence: None)
  Receive Date: 20050105
  Receipt Date: 20041122
  Transmission Date: 20050727
  Serious: Yes (Other)
  Sender: FDA-Public Use
  Company Number: PHFR2004GB04349

PATIENT
  Age: 32 Year
  Sex: Female

DRUGS (2)
  1. RISPERIDONE [Concomitant]
  2. TEGRETOL [Suspect]
     Indication: MOOD ALTERED
     Dosage: 300 MG, BID
     Dates: start: 20030101

REACTIONS (2)
  - HYPERPROLACTINAEMIA [None]
  - POLYCYSTIC OVARIES [None]
